FAERS Safety Report 20792341 (Version 2)
Quarter: 2022Q2

REPORT INFORMATION
  Report Type: Report from Study
  Country: NL (occurrence: NL)
  Receive Date: 20220505
  Receipt Date: 20220509
  Transmission Date: 20220721
  Serious: Yes (Death, Hospitalization)
  Sender: FDA-Public Use
  Company Number: NL-ABBVIE-22K-114-4382484-00

PATIENT
  Age: 72 Year
  Sex: Male

DRUGS (13)
  1. VENETOCLAX [Suspect]
     Active Substance: VENETOCLAX
     Indication: Acute myeloid leukaemia
     Dosage: DAILY AT A MAXIMUM OF 100 MG DURING EACH SUBSEQUENT 28-DAY CYCLE
     Route: 048
     Dates: start: 202201, end: 202204
  2. VIDAZA [Concomitant]
     Active Substance: AZACITIDINE
     Indication: Product used for unknown indication
  3. POSACONAZOLE [Concomitant]
     Active Substance: POSACONAZOLE
     Indication: Fungal infection
     Dosage: 10 MG (MAXIMUM)
  4. POSACONAZOLE [Concomitant]
     Active Substance: POSACONAZOLE
     Dosage: 20 MG (MAXIMUM)
  5. POSACONAZOLE [Concomitant]
     Active Substance: POSACONAZOLE
     Dosage: 50 MG (MAXIMUM)
  6. POSACONAZOLE [Concomitant]
     Active Substance: POSACONAZOLE
     Dosage: 100 MG (MAXIMUM)
  7. POSACONAZOLE [Concomitant]
     Active Substance: POSACONAZOLE
     Dates: start: 202112, end: 202204
  8. CIPROFLOXACIN [Concomitant]
     Active Substance: CIPROFLOXACIN
     Indication: Prophylaxis
     Route: 048
     Dates: start: 202202
  9. VALACYCLOVIR HYDROCHLORIDE [Concomitant]
     Active Substance: VALACYCLOVIR HYDROCHLORIDE
     Indication: Prophylaxis
     Route: 048
  10. TRANEXAMIC ACID [Concomitant]
     Active Substance: TRANEXAMIC ACID
     Indication: Epistaxis
     Route: 048
     Dates: start: 202110, end: 202204
  11. TRANEXAMIC ACID [Concomitant]
     Active Substance: TRANEXAMIC ACID
     Indication: Platelet count decreased
  12. PANTOZOL [Concomitant]
     Active Substance: PANTOPRAZOLE SODIUM
     Indication: Prophylaxis
     Route: 048
     Dates: start: 202110, end: 202204
  13. METOCLOPRAMIDE [Concomitant]
     Active Substance: METOCLOPRAMIDE
     Indication: Nausea
     Route: 048
     Dates: start: 202202, end: 202204

REACTIONS (5)
  - General physical health deterioration [Fatal]
  - Neutropenic sepsis [Recovered/Resolved with Sequelae]
  - Off label use [Unknown]
  - Nausea [Unknown]
  - Stomatitis [Unknown]

NARRATIVE: CASE EVENT DATE: 20220101
